FAERS Safety Report 8165941-0 (Version None)
Quarter: 2012Q1

REPORT INFORMATION
  Report Type: 
  Country: None (occurrence: None)
  Receive Date: 20120227
  Receipt Date: 20111128
  Transmission Date: 20120608
  Serious: No
  Sender: FDA-Public Use
  Company Number: US-MYLANLABS-2011S1024435

PATIENT
  Age: 15 Year
  Sex: Female

DRUGS (3)
  1. ORAL CONTRACEPTIVE NOS [Concomitant]
     Indication: CONTRACEPTION
     Route: 048
  2. AMNESTEEM [Suspect]
     Indication: ACNE
     Route: 048
     Dates: start: 20110901, end: 20111001
  3. AMNESTEEM [Suspect]
     Route: 048
     Dates: start: 20111001, end: 20111123

REACTIONS (2)
  - DEPRESSED MOOD [None]
  - ANGER [None]
